FAERS Safety Report 17648429 (Version 2)
Quarter: 2020Q2

REPORT INFORMATION
  Report Type: Report from Study
  Country: ES (occurrence: ES)
  Receive Date: 20200408
  Receipt Date: 20200408
  Transmission Date: 20200713
  Serious: Yes (Death)
  Sender: FDA-Public Use
  Company Number: ES-JNJFOC-20200400006

PATIENT
  Age: 66 Year
  Sex: Male

DRUGS (1)
  1. REMICADE [Suspect]
     Active Substance: INFLIXIMAB
     Indication: ARTHRITIS ENTEROPATHIC
     Dosage: 300 MG / 8 SEMANAS
     Route: 042
     Dates: start: 20060518

REACTIONS (5)
  - Product use in unapproved indication [Unknown]
  - Pulmonary nocardiosis [Fatal]
  - Cytomegalovirus infection [Fatal]
  - Pneumonia [Fatal]
  - Off label use [Unknown]

NARRATIVE: CASE EVENT DATE: 20060518
